FAERS Safety Report 9454535 (Version 1)
Quarter: 2013Q3

REPORT INFORMATION
  Report Type: Spontaneous
  Country: ES (occurrence: ES)
  Receive Date: 20130812
  Receipt Date: 20130812
  Transmission Date: 20140515
  Serious: Yes (Life-Threatening, Hospitalization)
  Sender: FDA-Public Use
  Company Number: ES-GLAXOSMITHKLINE-B0914362A

PATIENT
  Age: 57 Year
  Sex: Female

DRUGS (1)
  1. NEOTIGASON [Suspect]
     Indication: PSORIASIS
     Route: 048
     Dates: start: 20111107, end: 20120202

REACTIONS (1)
  - Portal vein thrombosis [Unknown]
